FAERS Safety Report 7244162-X (Version None)
Quarter: 2011Q1

REPORT INFORMATION
  Report Type: 
  Country: None (occurrence: None)
  Receive Date: 20110125
  Receipt Date: 20110124
  Transmission Date: 20110831
  Serious: Yes (Other)
  Sender: FDA-Public Use
  Company Number: JP-PFIZER INC-2010167386

PATIENT
  Age: 80 Year
  Sex: Female
  Weight: 44 kg

DRUGS (5)
  1. MAGNESIUM OXIDE [Concomitant]
     Indication: CONSTIPATION
     Dosage: 2 G, 2X/DAY
     Route: 048
     Dates: start: 20060906
  2. ALINAMIN F [Concomitant]
     Indication: HYPOVITAMINOSIS
     Dosage: 75 MG, 3X/DAY
     Route: 048
     Dates: start: 20060906
  3. ZOLOFT [Suspect]
     Indication: DEPRESSION
     Dosage: 25 MG, 1X/DAY
     Route: 048
     Dates: start: 20070730
  4. LIPITOR [Suspect]
     Indication: HYPERLIPIDAEMIA
     Dosage: 10 MG, 1X/DAY
     Route: 048
     Dates: start: 20060906
  5. PURSENNID [Concomitant]
     Indication: CONSTIPATION
     Dosage: 24 MG, 1X/DAY
     Route: 048
     Dates: start: 20060906

REACTIONS (3)
  - LOSS OF CONSCIOUSNESS [None]
  - DEPRESSION [None]
  - AMNESIA [None]
